FAERS Safety Report 11264498 (Version 1)
Quarter: 2015Q3

REPORT INFORMATION
  Report Type: Spontaneous
  Country: SA (occurrence: None)
  Receive Date: 20150709
  Receipt Date: 20150709
  Transmission Date: 20151125
  Serious: Yes (Other)
  Sender: FDA-Public Use
  Company Number: INT_00824_2015

PATIENT
  Age: 33 Year
  Sex: Male

DRUGS (3)
  1. CISPLATIN. [Suspect]
     Active Substance: CISPLATIN
     Indication: HODGKIN^S DISEASE
     Dosage: 25 MG/M2 4 DAYS (2 CYCLES) INTRAVENOUS (NOT OTHERWISE SPECIFIED)
     Route: 042
  2. METHYLPREDNISOLONE. [Suspect]
     Active Substance: METHYLPREDNISOLONE
     Indication: HODGKIN^S DISEASE
     Dosage: 250 MG QD, (1 CYCLE) INTRAVENOUS (NOT OTHERWISE SPECIFIED)?
     Route: 042
  3. CYTARABINE. [Suspect]
     Active Substance: CYTARABINE
     Indication: HODGKIN^S DISEASE
     Dosage: 2 MG/M2 ON DAY 5 BUT WITHOUT ETOPOSIDE (2 CYCLES) INTRAVENOUS (NOT OTHERWISE SPECIFIED)
     Route: 042

REACTIONS (9)
  - Coagulopathy [None]
  - Acute kidney injury [None]
  - General physical health deterioration [None]
  - Jaundice [None]
  - Blood bilirubin abnormal [None]
  - Blood creatinine increased [None]
  - Febrile neutropenia [None]
  - Klebsiella test positive [None]
  - Hepatic encephalopathy [None]
